FAERS Safety Report 14872581 (Version 1)
Quarter: 2018Q2

REPORT INFORMATION
  Report Type: Report from Study
  Country: DE (occurrence: DE)
  Receive Date: 20180510
  Receipt Date: 20180510
  Transmission Date: 20180711
  Serious: Yes (Other)
  Sender: FDA-Public Use
  Company Number: PHHY2018DE000797

PATIENT
  Sex: Male
  Weight: 77 kg

DRUGS (32)
  1. COSENTYX [Suspect]
     Active Substance: SECUKINUMAB
     Dosage: 150 MG, PER APPLICATION(PREFILLED PEN)
     Route: 065
     Dates: start: 20160930
  2. COSENTYX [Suspect]
     Active Substance: SECUKINUMAB
     Dosage: 150 MG, PER APPLICATION(PREFILLED PEN)
     Route: 065
     Dates: start: 20161230
  3. COSENTYX [Suspect]
     Active Substance: SECUKINUMAB
     Dosage: 150 MG, PER APPLICATION(PREFILLED PEN)
     Route: 065
     Dates: start: 20170519
  4. VIGANTOLETTEN [Concomitant]
     Active Substance: CHOLECALCIFEROL
     Indication: VITAMIN D DEFICIENCY
     Dosage: 2000 IU, QD
     Route: 048
  5. COSENTYX [Suspect]
     Active Substance: SECUKINUMAB
     Dosage: 150 MG, PER APPLICATION(PREFILLED PEN)
     Route: 065
     Dates: start: 20161202
  6. COSENTYX [Suspect]
     Active Substance: SECUKINUMAB
     Dosage: 150 MG, PER APPLICATION(PREFILLED PEN)
     Route: 065
     Dates: start: 20170324
  7. COSENTYX [Suspect]
     Active Substance: SECUKINUMAB
     Dosage: 150 MG, PER APPLICATION(PREFILLED PEN)
     Route: 065
     Dates: start: 20170919
  8. CANDESARTAN. [Concomitant]
     Active Substance: CANDESARTAN
     Indication: HYPERTENSION
     Dosage: 8 MG, QD (1-0-0)
     Route: 048
     Dates: start: 201608
  9. COSENTYX [Suspect]
     Active Substance: SECUKINUMAB
     Indication: PSORIATIC ARTHROPATHY
     Dosage: 150 MG, PER APPLICATION
     Route: 058
     Dates: start: 20160909
  10. COSENTYX [Suspect]
     Active Substance: SECUKINUMAB
     Dosage: 150 MG, PER APPLICATION(PREFILLED PEN)
     Route: 065
     Dates: start: 20161104
  11. COSENTYX [Suspect]
     Active Substance: SECUKINUMAB
     Dosage: 150 MG, PER APPLICATION(PREFILLED PEN)
     Route: 065
     Dates: start: 20170127
  12. COSENTYX [Suspect]
     Active Substance: SECUKINUMAB
     Dosage: 150 MG, PER APPLICATION(PREFILLED PEN)
     Route: 065
     Dates: start: 20170822
  13. COSENTYX [Suspect]
     Active Substance: SECUKINUMAB
     Dosage: 150 MG, PER APPLICATION(PREFILLED PEN)
     Route: 065
     Dates: start: 20171017
  14. COSENTYX [Suspect]
     Active Substance: SECUKINUMAB
     Dosage: 150 MG, PER APPLICATION(PREFILLED PEN)
     Route: 065
     Dates: start: 20171114
  15. COSENTYX [Suspect]
     Active Substance: SECUKINUMAB
     Dosage: 150 MG, PER APPLICATION(PREFILLED PEN)
     Route: 065
     Dates: start: 20180109
  16. COSENTYX [Suspect]
     Active Substance: SECUKINUMAB
     Dosage: 150 MG, PER APPLICATION(PREFILLED PEN)
     Route: 065
     Dates: start: 20170421
  17. COSENTYX [Suspect]
     Active Substance: SECUKINUMAB
     Dosage: 150 MG, PER APPLICATION(PREFILLED PEN)
     Route: 065
     Dates: start: 20170616
  18. COSENTYX [Suspect]
     Active Substance: SECUKINUMAB
     Dosage: 150 MG, PER APPLICATION(PREFILLED PEN)
     Route: 065
     Dates: start: 20180206
  19. SIMVAHEXAL [Concomitant]
     Active Substance: SIMVASTATIN
     Indication: PRODUCT USED FOR UNKNOWN INDICATION
     Dosage: 20 MG, QD (0-0-1)
     Route: 048
     Dates: start: 201209
  20. COSENTYX [Suspect]
     Active Substance: SECUKINUMAB
     Dosage: 150 MG, PER APPLICATION(PREFILLED PEN)
     Route: 065
     Dates: start: 20161007
  21. COSENTYX [Suspect]
     Active Substance: SECUKINUMAB
     Dosage: 150 MG, PER APPLICATION(PREFILLED PEN)
     Route: 065
     Dates: start: 20170224
  22. AMLODIPINE [Concomitant]
     Active Substance: AMLODIPINE BESYLATE
     Indication: HYPERTENSION
     Dosage: 5 MG, QD (1-0-0)
     Route: 048
     Dates: start: 201509
  23. COSENTYX [Suspect]
     Active Substance: SECUKINUMAB
     Dosage: 150 MG, PER APPLICATION(PREFILLED PEN)
     Route: 065
     Dates: start: 20160923
  24. COSENTYX [Suspect]
     Active Substance: SECUKINUMAB
     Dosage: 150 MG, PER APPLICATION(PREFILLED PEN)
     Route: 065
     Dates: start: 201803
  25. TAMSUNAR [Concomitant]
     Indication: PROSTATIC DISORDER
     Dosage: 0.4 MG, QD (0-0-1)
     Route: 048
     Dates: start: 201411
  26. COSENTYX [Suspect]
     Active Substance: SECUKINUMAB
     Dosage: 150 MG, PER APPLICATION(PREFILLED PEN)
     Route: 065
     Dates: start: 20160916
  27. COSENTYX [Suspect]
     Active Substance: SECUKINUMAB
     Dosage: 150 MG, PER APPLICATION(PREFILLED PEN)
     Route: 065
     Dates: start: 20180306
  28. FLECAINIDE [Concomitant]
     Active Substance: FLECAINIDE
     Indication: ARRHYTHMIA
     Dosage: 100 MG, BID (1-0-1)
     Route: 048
     Dates: start: 2012
  29. COSENTYX [Suspect]
     Active Substance: SECUKINUMAB
     Dosage: 150 MG, PER APPLICATION(PREFILLED PEN)
     Route: 065
     Dates: start: 20170725
  30. COSENTYX [Suspect]
     Active Substance: SECUKINUMAB
     Dosage: 150 MG, PER APPLICATION(PREFILLED PEN)
     Route: 065
     Dates: start: 20171212
  31. DECORTIN [Concomitant]
     Active Substance: PREDNISONE
     Indication: PSORIATIC ARTHROPATHY
     Dosage: 5 MG, QD
     Route: 048
  32. PANTOPRAZOLE [Concomitant]
     Active Substance: PANTOPRAZOLE
     Indication: PRODUCT USED FOR UNKNOWN INDICATION
     Dosage: 40 MG, QD
     Route: 048

REACTIONS (2)
  - Adrenocortical carcinoma [Unknown]
  - Metastases to bone [Unknown]

NARRATIVE: CASE EVENT DATE: 20180424
